FAERS Safety Report 12302287 (Version 1)
Quarter: 2016Q2

REPORT INFORMATION
  Report Type: Spontaneous
  Country: ES (occurrence: ES)
  Receive Date: 20160425
  Receipt Date: 20160425
  Transmission Date: 20160815
  Serious: Yes (Hospitalization)
  Sender: FDA-Public Use
  Company Number: ES-ASTRAZENECA-2016SE42978

PATIENT
  Age: 68 Year
  Sex: Female

DRUGS (12)
  1. ALPRAZOLAM. [Concomitant]
     Active Substance: ALPRAZOLAM
  2. LEVOSULPIRIDE [Concomitant]
     Active Substance: LEVOSULPIRIDE
  3. CONBRIZA [Concomitant]
     Active Substance: BAZEDOXIFENE ACETATE
  4. INSULIN GLARGINE [Concomitant]
     Active Substance: INSULIN GLARGINE
  5. FASFOCINE [Concomitant]
     Dosage: 3 G, 2 SACHETS
     Dates: start: 20160125
  6. TELMISARTAN. [Concomitant]
     Active Substance: TELMISARTAN
  7. XIGDUO XR [Suspect]
     Active Substance: DAPAGLIFLOZIN PROPANEDIOL\METFORMIN HYDROCHLORIDE
     Indication: DIABETES MELLITUS
     Route: 048
     Dates: start: 20151215, end: 20160212
  8. CEFUROXIME. [Concomitant]
     Active Substance: CEFUROXIME
     Dosage: 500 MG/ 12 HOURS
     Dates: start: 20160208
  9. MOXONIDINE [Concomitant]
     Active Substance: MOXONIDINE
  10. PANTOPRAZOLE [Concomitant]
     Active Substance: PANTOPRAZOLE SODIUM
  11. VESICARE [Concomitant]
     Active Substance: SOLIFENACIN SUCCINATE
  12. VITAMIN D + CALCIUM (VITAMIN D/CALCIUM) [Concomitant]

REACTIONS (4)
  - Metabolic acidosis [Recovered/Resolved]
  - Hyperglycaemia [Recovered/Resolved]
  - Urinary tract infection [Unknown]
  - Gastrointestinal viral infection [Unknown]

NARRATIVE: CASE EVENT DATE: 20160212
